FAERS Safety Report 20569220 (Version 1)
Quarter: 2022Q1

REPORT INFORMATION
  Report Type: Spontaneous
  Country: CA (occurrence: CA)
  Receive Date: 20220308
  Receipt Date: 20220308
  Transmission Date: 20220423
  Serious: Yes (Other)
  Sender: FDA-Public Use
  Company Number: CA-JNJFOC-20220306260

PATIENT
  Age: 61 Year
  Sex: Female

DRUGS (10)
  1. REMICADE [Suspect]
     Active Substance: INFLIXIMAB
     Indication: Crohn^s disease
     Route: 042
  2. AZITHROMYCIN [Concomitant]
     Active Substance: AZITHROMYCIN
     Route: 048
  3. BUDESONIDE\FORMOTEROL FUMARATE [Concomitant]
     Active Substance: BUDESONIDE\FORMOTEROL FUMARATE
  4. CYANOCOBALAMIN [Concomitant]
     Active Substance: CYANOCOBALAMIN
  5. METFORMIN [Concomitant]
     Active Substance: METFORMIN HYDROCHLORIDE
  6. POTASSIUM [Concomitant]
     Active Substance: POTASSIUM
     Route: 048
  7. PREDNISONE [Concomitant]
     Active Substance: PREDNISONE
     Route: 048
  8. GLYCOPYRROLATE [Concomitant]
     Active Substance: GLYCOPYRROLATE
  9. VENTOLIN [Concomitant]
     Active Substance: ALBUTEROL SULFATE
  10. ZAFIRLUKAST [Concomitant]
     Active Substance: ZAFIRLUKAST
     Route: 048

REACTIONS (2)
  - Pneumonia bacterial [Not Recovered/Not Resolved]
  - Off label use [Not Recovered/Not Resolved]
